FAERS Safety Report 4806303-0 (Version None)
Quarter: 2005Q4

REPORT INFORMATION
  Report Type: 
  Country: None (occurrence: None)
  Receive Date: 20051021
  Receipt Date: 20050718
  Transmission Date: 20060501
  Serious: Yes (Death, Hospitalization)
  Sender: FDA-Public Use
  Company Number: US-MERCK-0507USA02935

PATIENT
  Age: 62 Year
  Sex: Male
  Weight: 80 kg

DRUGS (21)
  1. VIOXX [Suspect]
     Indication: NECK PAIN
     Route: 048
     Dates: start: 20001229, end: 20020719
  2. VIOXX [Suspect]
     Indication: SHOULDER PAIN
     Route: 048
     Dates: start: 20001229, end: 20020719
  3. TOPROL-XL [Concomitant]
     Indication: HYPERTENSION
     Route: 065
     Dates: start: 20011211
  4. LIPITOR [Concomitant]
     Indication: BLOOD CHOLESTEROL INCREASED
     Route: 065
     Dates: start: 19980915, end: 20020718
  5. TOPAMAX [Concomitant]
     Indication: MIGRAINE
     Route: 065
     Dates: start: 19990930, end: 19991101
  6. LORAZEPAM [Concomitant]
     Indication: ANXIETY
     Route: 065
  7. INDERAL LA [Concomitant]
     Indication: CARDIAC DISORDER
     Route: 065
  8. PENICILLIN VK [Concomitant]
     Indication: BACTERIAL INFECTION
     Route: 065
  9. VICODIN ES [Concomitant]
     Indication: PAIN
     Route: 065
     Dates: start: 20020423, end: 20020523
  10. VICODIN ES [Concomitant]
     Route: 065
     Dates: start: 20000814, end: 20010119
  11. TRIMOX [Concomitant]
     Indication: BACTERIAL INFECTION
     Route: 065
  12. CLINDAMYCIN HYDROCHLORIDE [Concomitant]
     Indication: BACTERIAL INFECTION
     Route: 065
  13. NEURONTIN [Concomitant]
     Indication: PAIN
     Route: 065
     Dates: start: 20001007, end: 20010320
  14. PROZAC [Concomitant]
     Indication: DEPRESSION
     Route: 065
  15. RISPERDAL [Concomitant]
     Route: 065
  16. TRAZODONE HYDROCHLORIDE [Concomitant]
     Indication: DEPRESSION
     Route: 065
  17. LEVOXYL [Concomitant]
     Indication: HORMONE LEVEL ABNORMAL
     Route: 065
     Dates: start: 20010307, end: 20010612
  18. SEROQUEL [Concomitant]
     Route: 065
  19. BUSPAR [Concomitant]
     Indication: ANXIETY
     Route: 065
  20. HYDROXYZINE PAMOATE [Concomitant]
     Indication: HYPERSENSITIVITY
     Route: 065
  21. HYDROXYZINE PAMOATE [Concomitant]
     Indication: INFECTION PARASITIC
     Route: 065

REACTIONS (3)
  - BLOOD TRIGLYCERIDES INCREASED [None]
  - MYOCARDIAL INFARCTION [None]
  - NEPHROLITHIASIS [None]
